FAERS Safety Report 4687978-6 (Version None)
Quarter: 2005Q2

REPORT INFORMATION
  Report Type: 
  Country: None (occurrence: None)
  Receive Date: 20050610
  Receipt Date: 20050519
  Transmission Date: 20051028
  Serious: Yes (Hospitalization)
  Sender: FDA-Public Use
  Company Number: PHEH2005US05716

PATIENT
  Age: 28 Year
  Sex: Female
  Weight: 59 kg

DRUGS (7)
  1. TRILEPTAL [Suspect]
     Indication: CONVULSION
     Dosage: 300 MG, BID
     Route: 048
     Dates: start: 20050430
  2. TRILEPTAL [Suspect]
     Dosage: 600 MG, BID
     Dates: end: 20050516
  3. PHENYTOIN [Suspect]
     Indication: CONVULSION
     Dosage: 300 MG, UNK
  4. GABITRIL [Concomitant]
     Dosage: 12/36
  5. LEXAPRO [Concomitant]
  6. NEURONTIN [Concomitant]
     Dosage: 300 MG, TID
  7. ROBAXIN [Concomitant]

REACTIONS (4)
  - ABDOMINAL PAIN [None]
  - ALANINE AMINOTRANSFERASE INCREASED [None]
  - ASPARTATE AMINOTRANSFERASE INCREASED [None]
  - HEPATITIS C POSITIVE [None]
